FAERS Safety Report 8453855-8 (Version None)
Quarter: 2012Q2

REPORT INFORMATION
  Report Type: 
  Country: None (occurrence: None)
  Receive Date: 20120620
  Receipt Date: 20120411
  Transmission Date: 20120825
  Serious: Yes (Death, Hospitalization)
  Sender: FDA-Public Use
  Company Number: US-CELGENEUS-163-50794-12040155

PATIENT
  Age: 77 Year
  Sex: Female
  Weight: 80 kg

DRUGS (9)
  1. GEMTUZUMAB OZOGAMICIN [Suspect]
     Dosage: 3 MILLIGRAM/SQ. METER
     Route: 041
     Dates: start: 20120202, end: 20120213
  2. BLOOD TRANSFUSION [Concomitant]
     Indication: FULL BLOOD COUNT DECREASED
     Route: 041
     Dates: start: 20120227, end: 20120227
  3. HYDROXYUREA [Concomitant]
     Dosage: 1500 MILLIGRAM
     Route: 048
     Dates: start: 20120302
  4. HYDROXYUREA [Concomitant]
     Dosage: 500 MILLIGRAM
     Route: 048
     Dates: start: 20120202, end: 20120101
  5. PROZAC [Concomitant]
     Route: 065
     Dates: start: 20120308
  6. VIDAZA [Suspect]
     Dosage: 75 MILLIGRAM/SQ. METER
     Route: 058
     Dates: start: 20120302, end: 20120308
  7. GEMTUZUMAB OZOGAMICIN [Suspect]
     Dosage: 3 MILLIGRAM/SQ. METER
     Route: 041
     Dates: start: 20120302, end: 20120309
  8. VIDAZA [Suspect]
     Dosage: 75 MILLIGRAM/SQ. METER
     Route: 058
     Dates: start: 20120202, end: 20120210
  9. CLORPROMAZINE [Concomitant]
     Route: 065
     Dates: start: 20120301

REACTIONS (6)
  - ASPARTATE AMINOTRANSFERASE INCREASED [None]
  - MULTI-ORGAN FAILURE [None]
  - ALANINE AMINOTRANSFERASE INCREASED [None]
  - BLOOD BILIRUBIN INCREASED [None]
  - TROPONIN I INCREASED [None]
  - INFUSION RELATED REACTION [None]
